FAERS Safety Report 6018550-3 (Version None)
Quarter: 2008Q4

REPORT INFORMATION
  Report Type: 
  Country: None (occurrence: None)
  Receive Date: 20081223
  Receipt Date: 20081204
  Transmission Date: 20090506
  Serious: No
  Sender: FDA-Public Use
  Company Number: US-B.I. PHARMACEUTICALS,INC./RIDGEFIELD-2008-BP-18276BP

PATIENT
  Age: 63 Year
  Sex: Male

DRUGS (5)
  1. MIRAPEX [Suspect]
     Indication: RESTLESS LEGS SYNDROME
     Dosage: .125MG
     Route: 048
     Dates: start: 20081117
  2. MIRAPEX [Suspect]
     Dosage: 1MG
     Dates: start: 20081119
  3. MORPHINE [Concomitant]
  4. OXYCODONE HCL [Concomitant]
  5. ROPINIROLE [Concomitant]
     Indication: RESTLESS LEGS SYNDROME
     Dosage: 6MG
     Dates: end: 20081116

REACTIONS (2)
  - DRUG INEFFECTIVE [None]
  - INSOMNIA [None]
